FAERS Safety Report 4928195-1 (Version None)
Quarter: 2006Q1

REPORT INFORMATION
  Report Type: 
  Country: None (occurrence: None)
  Receive Date: 20060223
  Receipt Date: 20060207
  Transmission Date: 20060701
  Serious: Yes (Life-Threatening, Hospitalization)
  Sender: FDA-Public Use
  Company Number: FR200602001230

PATIENT
  Age: 45 Year
  Sex: Female
  Weight: 55 kg

DRUGS (5)
  1. XIGRIS [Suspect]
     Dosage: 24 UG/KG/HR, DAILY (1/D), INTRAVENOUS
     Route: 042
     Dates: start: 20051216, end: 20051219
  2. LEVENOX (HEPARIN-FRACTION,S ODIUM SALT) AMPOULE [Concomitant]
  3. RIFADINE (RIFAMPICIN) POWDER, FOR SOLUTION [Concomitant]
  4. HYDROCORTISONE ^UPJOHN^ (HYDROCORTISONE) POWDER, FOR SOLUTION [Concomitant]
  5. OFLOCET (OFLOXACIN) SOLUTION [Concomitant]

REACTIONS (3)
  - HAEMOGLOBIN DECREASED [None]
  - RED BLOOD CELL COUNT DECREASED [None]
  - RETROPERITONEAL HAEMATOMA [None]
